FAERS Safety Report 21246251 (Version 1)
Quarter: 2022Q3

REPORT INFORMATION
  Report Type: Spontaneous
  Country: CA (occurrence: CA)
  Receive Date: 20220824
  Receipt Date: 20220824
  Transmission Date: 20221027
  Serious: Yes (Disabling)
  Sender: FDA-Public Use
  Company Number: CA-TEVA-2022-CA-2066647

PATIENT
  Age: 63 Year
  Sex: Female

DRUGS (1)
  1. BUPRENORPHINE HYDROCHLORIDE\NALOXONE HYDROCHLORIDE [Suspect]
     Active Substance: BUPRENORPHINE HYDROCHLORIDE\NALOXONE HYDROCHLORIDE
     Indication: Pain
     Dosage: 3 DOSAGE FORMS DAILY; THERAPY DURATION : 40.0 DAYS
     Route: 060

REACTIONS (4)
  - Lip swelling [Recovering/Resolving]
  - Palatal swelling [Recovering/Resolving]
  - Swollen tongue [Recovering/Resolving]
  - Throat irritation [Recovering/Resolving]
